FAERS Safety Report 23358347 (Version 2)
Quarter: 2024Q1

REPORT INFORMATION
  Report Type: Spontaneous
  Country: US (occurrence: US)
  Receive Date: 20240102
  Receipt Date: 20240104
  Transmission Date: 20240410
  Serious: Yes (Other)
  Sender: FDA-Public Use
  Company Number: US-PFIZER INC-202300450898

PATIENT
  Age: 70 Year
  Sex: Female

DRUGS (5)
  1. PAXLOVID [Suspect]
     Active Substance: NIRMATRELVIR\RITONAVIR
     Indication: COVID-19 treatment
     Dosage: 300/10, 20 BY 150 MG AND TBPK, QUANTITY 30. TAKE BY MOUTH, TWICE A DAY AS DIRECTED FOR 5 DAYS
     Route: 048
     Dates: start: 20231215, end: 20231219
  2. SYNTHROID [Concomitant]
     Active Substance: LEVOTHYROXINE SODIUM
     Dosage: 50 UG
  3. DIOVAN [Concomitant]
     Active Substance: VALSARTAN
     Dosage: 40 MG, 2X/DAY
  4. DIAZEPAM [Concomitant]
     Active Substance: DIAZEPAM
     Dosage: UNK
     Dates: start: 20231030, end: 20231214
  5. OXYCODONE [Concomitant]
     Active Substance: OXYCODONE
     Dosage: UNK
     Dates: start: 20231030, end: 20231214

REACTIONS (12)
  - Hypertension [Unknown]
  - Feeling abnormal [Unknown]
  - Disease recurrence [Not Recovered/Not Resolved]
  - COVID-19 [Not Recovered/Not Resolved]
  - Headache [Unknown]
  - Nausea [Unknown]
  - Fatigue [Unknown]
  - Product package associated injury [Unknown]
  - Product packaging issue [Unknown]
  - Pain [Not Recovered/Not Resolved]
  - Dysgeusia [Unknown]
  - Illness [Not Recovered/Not Resolved]

NARRATIVE: CASE EVENT DATE: 20231224
